FAERS Safety Report 4412829-4 (Version None)
Quarter: 2004Q3

REPORT INFORMATION
  Report Type: 
  Country: None (occurrence: None)
  Receive Date: 20040730
  Receipt Date: 20040730
  Transmission Date: 20050211
  Serious: Yes (Other)
  Sender: FDA-Public Use
  Company Number: None

PATIENT
  Age: 9 Year
  Sex: Female
  Weight: 38.5557 kg

DRUGS (2)
  1. ACETAMINOPHEN [Suspect]
     Indication: PHARYNGOLARYNGEAL PAIN
     Dosage: 350 MG 1 ORAL
     Route: 048
     Dates: start: 20040727, end: 20040728
  2. ACETAMINOPHEN [Suspect]
     Dosage: 350 MG 1 ORAL
     Route: 048

REACTIONS (1)
  - VOMITING [None]
